FAERS Safety Report 10522473 (Version 1)
Quarter: 2014Q4

REPORT INFORMATION
  Report Type: Spontaneous
  Country: IT (occurrence: IT)
  Receive Date: 20141016
  Receipt Date: 20141016
  Transmission Date: 20150528
  Serious: Yes (Other)
  Sender: FDA-Public Use
  Company Number: IT-ACTAVIS-2014-21910

PATIENT
  Age: 77 Year
  Sex: Male

DRUGS (1)
  1. QUETIAPINE (UNKNOWN) [Suspect]
     Active Substance: QUETIAPINE
     Indication: COGNITIVE DISORDER
     Dosage: 300 MG, DAILY
     Route: 048
     Dates: start: 20140720, end: 20140724

REACTIONS (3)
  - Abnormal behaviour [Recovering/Resolving]
  - Hallucination, visual [Recovering/Resolving]
  - Disorientation [Recovering/Resolving]

NARRATIVE: CASE EVENT DATE: 20140724
